FAERS Safety Report 24121690 (Version 2)
Quarter: 2024Q3

REPORT INFORMATION
  Report Type: Spontaneous
  Country: GR (occurrence: GR)
  Receive Date: 20240722
  Receipt Date: 20240925
  Transmission Date: 20241016
  Serious: No
  Sender: PFIZER
  Company Number: GR-PFIZER INC-202400215109

PATIENT
  Age: 12 Year
  Sex: Female
  Weight: 31 kg

DRUGS (3)
  1. GENOTROPIN [Suspect]
     Active Substance: SOMATROPIN
     Indication: Growth hormone deficiency
     Dosage: 6 MG, WEEKLY WITH ONE DAY OFF
     Route: 058
     Dates: start: 202403
  2. ABILIFY [Concomitant]
     Active Substance: ARIPIPRAZOLE
     Indication: Antipsychotic therapy
     Dosage: 7 ML, DAILY
  3. CLONIDINE [Concomitant]
     Active Substance: CLONIDINE
     Dosage: 1/4X1

REACTIONS (3)
  - Device mechanical issue [Not Recovered/Not Resolved]
  - Device breakage [Unknown]
  - Drug dose omission by device [Unknown]

NARRATIVE: CASE EVENT DATE: 20240712
